FAERS Safety Report 5083909-8 (Version None)
Quarter: 2006Q3

REPORT INFORMATION
  Report Type: 
  Country: None (occurrence: None)
  Receive Date: 20060727
  Receipt Date: 20060410
  Transmission Date: 20061208
  Serious: Yes (Other)
  Sender: FDA-Public Use
  Company Number: 2006051382

PATIENT
  Age: 82 Year
  Sex: Female
  Weight: 79.3795 kg

DRUGS (11)
  1. LYRICA [Suspect]
     Indication: DIABETIC NEUROPATHY
     Dosage: 150 MG (75 MG, 2 IN 1 D)
     Dates: start: 20060408, end: 20060408
  2. XANAX [Concomitant]
  3. ASPIRIN [Concomitant]
  4. MICARDIS [Concomitant]
  5. ISOSORBIDE (ISOSORBIDE) [Concomitant]
  6. METOPROLOL (METOPROLOL) [Concomitant]
  7. POTASSIUM (POTASSIUM) [Concomitant]
  8. K-DUR 10 [Concomitant]
  9. PLAVIX [Concomitant]
  10. INSULIN (INSULIN) [Concomitant]
  11. LIPITOR [Concomitant]

REACTIONS (3)
  - DYSSTASIA [None]
  - FATIGUE [None]
  - SEDATION [None]
